FAERS Safety Report 4996842-4 (Version None)
Quarter: 2006Q2

REPORT INFORMATION
  Report Type: 
  Country: None (occurrence: None)
  Receive Date: 20060509
  Receipt Date: 20060428
  Transmission Date: 20061013
  Serious: Yes (Hospitalization)
  Sender: FDA-Public Use
  Company Number: US-MERCK-0605USA00053

PATIENT
  Age: 74 Year
  Sex: Female
  Weight: 102 kg

DRUGS (10)
  1. VIOXX [Suspect]
     Indication: ARTHRITIS
     Route: 048
     Dates: start: 20000301, end: 20040901
  2. ASPIRIN [Concomitant]
     Route: 065
  3. ACCUPRIL [Concomitant]
     Route: 065
  4. ZANTAC [Concomitant]
     Route: 065
  5. PREMARIN [Concomitant]
     Route: 065
  6. TOPROL-XL [Concomitant]
     Route: 065
  7. WARFARIN [Concomitant]
     Route: 065
  8. NEXIUM [Concomitant]
     Route: 065
  9. DETROL [Concomitant]
     Route: 065
  10. [THERAPY UNSPECIFIED] [Concomitant]
     Route: 065

REACTIONS (2)
  - ANXIETY [None]
  - CEREBROVASCULAR ACCIDENT [None]
